FAERS Safety Report 23100187 (Version 1)
Quarter: 2023Q4

REPORT INFORMATION
  Report Type: Spontaneous
  Country: US (occurrence: US)
  Receive Date: 20231024
  Receipt Date: 20231024
  Transmission Date: 20240110
  Serious: Yes (Life-Threatening, Other)
  Sender: FDA-Public Use
  Company Number: US-PFIZER INC-PV202300171173

PATIENT
  Age: 33 Year
  Sex: Male

DRUGS (19)
  1. LORAZEPAM [Suspect]
     Active Substance: LORAZEPAM
     Indication: Agitation
     Dosage: 2 MG, NINE DOSES
     Route: 042
  2. LORAZEPAM [Suspect]
     Active Substance: LORAZEPAM
     Dosage: 4 MG, EVERY 6 H
     Route: 042
  3. LORAZEPAM [Suspect]
     Active Substance: LORAZEPAM
     Dosage: 3 MG, EVERY 6 H, ADDITIONAL
     Route: 042
  4. LORAZEPAM [Suspect]
     Active Substance: LORAZEPAM
     Dosage: 20 MG, DAILY
     Route: 042
  5. DIAZEPAM [Suspect]
     Active Substance: DIAZEPAM
     Indication: Agitation
     Dosage: 10 MG, THREE DOSES
     Route: 042
  6. DIAZEPAM [Suspect]
     Active Substance: DIAZEPAM
     Dosage: 5 MG, TWO DOSES
     Route: 042
  7. DEXMEDETOMIDINE HYDROCHLORIDE [Suspect]
     Active Substance: DEXMEDETOMIDINE HYDROCHLORIDE
     Indication: Sedation
     Dosage: UNK, INFUSION
  8. QUETIAPINE [Suspect]
     Active Substance: QUETIAPINE
     Indication: Agitation
     Dosage: 50 MG
     Route: 048
  9. QUETIAPINE [Suspect]
     Active Substance: QUETIAPINE
     Indication: Bipolar disorder
     Dosage: 50 MG, 3X/DAY
  10. QUETIAPINE [Suspect]
     Active Substance: QUETIAPINE
     Indication: Mania
  11. ZIPRASIDONE [Suspect]
     Active Substance: ZIPRASIDONE
     Indication: Agitation
     Dosage: 20 MG
  12. CHLORPROMAZINE [Suspect]
     Active Substance: CHLORPROMAZINE
     Indication: Agitation
     Dosage: 50 MG, EVERY 6 H
     Route: 030
  13. VALPROATE [Suspect]
     Active Substance: VALPROIC ACID
     Indication: Bipolar disorder
     Dosage: 500 MG, 2X/DAY
     Route: 042
  14. VALPROATE [Suspect]
     Active Substance: VALPROIC ACID
     Indication: Mania
     Dosage: 750 MG, 2X/DAY
     Route: 042
  15. VALPROATE [Suspect]
     Active Substance: VALPROIC ACID
     Dosage: 1500 MG, DAILY
  16. BUPRENORPHINE [Suspect]
     Active Substance: BUPRENORPHINE
     Indication: Drug withdrawal syndrome
     Dosage: 4 MG
  17. VANCOMYCIN [Concomitant]
     Active Substance: VANCOMYCIN
     Indication: Muscle abscess
     Dosage: UNK
     Route: 042
  18. THIAMINE [Concomitant]
     Active Substance: THIAMINE
     Dosage: UNK
     Route: 042
  19. FOLIC ACID [Concomitant]
     Active Substance: FOLIC ACID
     Dosage: UNK

REACTIONS (1)
  - Drug ineffective [Unknown]
